FAERS Safety Report 17580855 (Version 11)
Quarter: 2021Q3

REPORT INFORMATION
  Report Type: Spontaneous
  Country: GB (occurrence: GB)
  Receive Date: 20200325
  Receipt Date: 20210727
  Transmission Date: 20211014
  Serious: Yes (Hospitalization, Other)
  Sender: FDA-Public Use
  Company Number: GB-MYLANLABS-2020M1030393

PATIENT
  Age: 68 Year
  Sex: Male

DRUGS (43)
  1. IVABRADINE [Suspect]
     Active Substance: IVABRADINE
     Dosage: 2.5 MILLIGRAM, BID
     Route: 065
  2. IVABRADINE [Suspect]
     Active Substance: IVABRADINE
     Dosage: UNK UNK, BID
     Route: 065
  3. IVABRADINE [Suspect]
     Active Substance: IVABRADINE
     Dosage: 5 MILLIGRAM, QD
     Route: 065
  4. BISOPROLOL [Suspect]
     Active Substance: BISOPROLOL
     Dosage: 25 MILLIGRAM, QD
  5. BISOPROLOL [Suspect]
     Active Substance: BISOPROLOL
     Dosage: 2.5 MILLIGRAM
  6. SACUBITRIL W/VALSARTAN [Suspect]
     Active Substance: SACUBITRIL\VALSARTAN
     Dosage: 2 DOSAGE FORM, BID (49/51 MG, BID)
  7. ISMN [Concomitant]
     Active Substance: ISOSORBIDE MONONITRATE
     Indication: PRODUCT USED FOR UNKNOWN INDICATION
     Dosage: 25 MILLIGRAM, QD
     Route: 065
  8. METOLAZON [Concomitant]
     Active Substance: METOLAZONE
     Dosage: 2.5 MILLIGRAM, Q3W
     Route: 065
  9. METOLAZON [Concomitant]
     Active Substance: METOLAZONE
     Dosage: 3 DOSAGE FORM, QW (3 DF, 1X/WEEK (2.5 OT, Q3W) )
     Route: 065
  10. RAMIPRIL. [Suspect]
     Active Substance: RAMIPRIL
     Indication: PRODUCT USED FOR UNKNOWN INDICATION
     Dosage: 2.5 MILLIGRAM, BID
     Route: 065
  11. SACUBITRIL W/VALSARTAN [Suspect]
     Active Substance: SACUBITRIL\VALSARTAN
     Indication: PRODUCT USED FOR UNKNOWN INDICATION
     Dosage: 1 DF, BID 49/51 MG (ONCE IN 12 HOURS)
     Route: 065
  12. BUMETANIDE. [Concomitant]
     Active Substance: BUMETANIDE
     Dosage: 2.5 MILLIGRAM, Q3W
     Route: 065
  13. IVABRADINE [Suspect]
     Active Substance: IVABRADINE
     Dosage: 2 DOSAGE FORM, BID
     Route: 065
  14. EPLERENONE. [Suspect]
     Active Substance: EPLERENONE
     Indication: PRODUCT USED FOR UNKNOWN INDICATION
     Dosage: 25 MG (GARGEL, TABLET FOR SOLUTION)
     Route: 065
  15. EPLERENONE. [Suspect]
     Active Substance: EPLERENONE
     Dosage: UNK
     Route: 065
  16. SACUBITRIL W/VALSARTAN [Suspect]
     Active Substance: SACUBITRIL\VALSARTAN
     Dosage: UNK, BID (2 DF, 1 DF, 49/51 MG, TWO TIMES A DAY)
     Route: 065
  17. ISOSORBIDE MONONITRATE. [Suspect]
     Active Substance: ISOSORBIDE MONONITRATE
     Indication: PRODUCT USED FOR UNKNOWN INDICATION
     Dosage: 25 MILLIGRAM, QD
     Route: 065
  18. ISOSORBIDE MONONITRATE. [Suspect]
     Active Substance: ISOSORBIDE MONONITRATE
     Dosage: 25 MILLIGRAM
     Route: 065
  19. BISOPROLOL [Suspect]
     Active Substance: BISOPROLOL
     Dosage: UNK
     Route: 065
  20. RAMIPRIL. [Suspect]
     Active Substance: RAMIPRIL
     Dosage: UNK
     Route: 065
  21. RAMIPRIL. [Suspect]
     Active Substance: RAMIPRIL
     Dosage: 2.5 MILLIGRAM
     Route: 065
  22. SACUBITRIL W/VALSARTAN [Suspect]
     Active Substance: SACUBITRIL\VALSARTAN
     Dosage: 1 DF, BID 24/26 MG (ONCE IN 12 HOURS)
     Route: 065
  23. SACUBITRIL W/VALSARTAN [Suspect]
     Active Substance: SACUBITRIL\VALSARTAN
     Dosage: 2 DOSAGE FORM, BID (24/26 MG, BID )
  24. BUMETANIDE. [Concomitant]
     Active Substance: BUMETANIDE
     Dosage: 3 MG, BID (ONCE IN 12 HOURS)
  25. IVABRADINE                         /05513502/ [Concomitant]
     Indication: PRODUCT USED FOR UNKNOWN INDICATION
     Dosage: 2.5 MILLIGRAM, BID
  26. SACUBITRIL W/VALSARTAN [Suspect]
     Active Substance: SACUBITRIL\VALSARTAN
     Dosage: 2 DF, 1 DF, BID 49/51 MG (ONCE IN 12 HOURS)
     Route: 065
  27. ISOSORBIDE MONONITRATE. [Suspect]
     Active Substance: ISOSORBIDE MONONITRATE
     Dosage: UNK
  28. BUMETANIDE. [Concomitant]
     Active Substance: BUMETANIDE
     Indication: PRODUCT USED FOR UNKNOWN INDICATION
     Dosage: UNK, QD, (3 OT, BID)
     Route: 065
  29. BUMETANIDE. [Concomitant]
     Active Substance: BUMETANIDE
     Dosage: 1 DOSAGE FORM
     Route: 065
  30. ISMN [Concomitant]
     Active Substance: ISOSORBIDE MONONITRATE
     Indication: PRODUCT USED FOR UNKNOWN INDICATION
     Dosage: 25 MILLIGRAM
  31. IVABRADINE [Suspect]
     Active Substance: IVABRADINE
     Indication: PRODUCT USED FOR UNKNOWN INDICATION
     Dosage: 2.5 MILLIGRAM, BID
     Route: 065
  32. BISOPROLOL [Suspect]
     Active Substance: BISOPROLOL
     Indication: PRODUCT USED FOR UNKNOWN INDICATION
     Dosage: 7.5 MILLIGRAM
     Route: 065
  33. BISOPROLOL [Suspect]
     Active Substance: BISOPROLOL
     Dosage: 7.5 MILLIGRAM
     Route: 065
  34. RAMIPRIL. [Suspect]
     Active Substance: RAMIPRIL
     Dosage: 2.5 MILLIGRAM
     Route: 065
  35. SACUBITRIL W/VALSARTAN [Suspect]
     Active Substance: SACUBITRIL\VALSARTAN
     Dosage: 2 DF, DF, BID 24/26 MG (ONCE IN 12 HOURS) (DENTAL GEL)
     Route: 065
  36. METOLAZON [Concomitant]
     Active Substance: METOLAZONE
     Indication: PRODUCT USED FOR UNKNOWN INDICATION
     Dosage: UNK, Q3W, (2.5 OT, Q3W)
     Route: 065
  37. BUMETANIDE. [Concomitant]
     Active Substance: BUMETANIDE
     Dosage: 1 DF (2/1 MG)
  38. BUMETANIDE. [Concomitant]
     Active Substance: BUMETANIDE
     Dosage: 1 DF (3/2 MG)
  39. IVABRADINE [Suspect]
     Active Substance: IVABRADINE
     Dosage: UNK
     Route: 065
  40. BISOPROLOL [Suspect]
     Active Substance: BISOPROLOL
     Dosage: UNK
     Route: 065
  41. BISOPROLOL [Suspect]
     Active Substance: BISOPROLOL
     Dosage: 2.5 MILLIGRAM, BID
  42. BISOPROLOL [Suspect]
     Active Substance: BISOPROLOL
     Dosage: UNK UNK, BID
  43. ISMN [Concomitant]
     Active Substance: ISOSORBIDE MONONITRATE
     Dosage: UNK

REACTIONS (9)
  - Dizziness [Unknown]
  - Venous pressure jugular decreased [Unknown]
  - Sinus bradycardia [Unknown]
  - Blood potassium increased [Unknown]
  - Blood pressure decreased [Unknown]
  - Glomerular filtration rate decreased [Unknown]
  - Blood pressure systolic decreased [Unknown]
  - Oedema peripheral [Unknown]
  - Venous pressure jugular increased [Unknown]

NARRATIVE: CASE EVENT DATE: 2020
